FAERS Safety Report 4330670-8 (Version None)
Quarter: 2004Q2

REPORT INFORMATION
  Report Type: 
  Country: None (occurrence: None)
  Receive Date: 20040402
  Receipt Date: 20040329
  Transmission Date: 20050107
  Serious: Yes (Hospitalization)
  Sender: FDA-Public Use
  Company Number: FR-GLAXOSMITHKLINE-B0328580A

PATIENT
  Age: 44 Year
  Sex: Female

DRUGS (3)
  1. ZYBAN [Suspect]
     Indication: EX-SMOKER
     Route: 048
  2. CIFLOX 500 [Suspect]
     Indication: PYELONEPHRITIS
     Dosage: 500MG TWICE PER DAY
     Route: 048
     Dates: start: 20040205, end: 20040209
  3. VITAMINE B1 [Concomitant]
     Dosage: 500MG THREE TIMES PER DAY
     Route: 048

REACTIONS (6)
  - ABNORMAL BEHAVIOUR [None]
  - CONFUSIONAL STATE [None]
  - DELIRIUM TREMENS [None]
  - HYPONATRAEMIA [None]
  - PYELONEPHRITIS [None]
  - RENAL FAILURE ACUTE [None]
